FAERS Safety Report 4958171-4 (Version None)
Quarter: 2006Q1

REPORT INFORMATION
  Report Type: 
  Country: None (occurrence: None)
  Receive Date: 20060324
  Receipt Date: 20060313
  Transmission Date: 20060701
  Serious: Yes (Hospitalization)
  Sender: FDA-Public Use
  Company Number: 2006013251

PATIENT
  Age: 69 Year
  Sex: Female
  Weight: 57.5 kg

DRUGS (1)
  1. SUTENT [Suspect]
     Indication: GASTROINTESTINAL STROMAL TUMOUR
     Dosage: 50 MG (50 MG, CYCLIC INTERVAL:  EVERY DAY), ORAL
     Route: 048
     Dates: start: 20060109

REACTIONS (4)
  - EPISTAXIS [None]
  - FALL [None]
  - NAUSEA [None]
  - VOMITING [None]
